FAERS Safety Report 12271396 (Version 2)
Quarter: 2016Q2

REPORT INFORMATION
  Report Type: Report from Study
  Country: US (occurrence: US)
  Receive Date: 20160415
  Receipt Date: 20160621
  Transmission Date: 20160815
  Serious: No
  Sender: FDA-Public Use
  Company Number: PHHY2015US028462

PATIENT
  Age: 46 Year
  Sex: Female

DRUGS (1)
  1. GILENYA [Suspect]
     Active Substance: FINGOLIMOD HYDROCHLORIDE
     Indication: MULTIPLE SCLEROSIS
     Dosage: UNK, QD
     Route: 048

REACTIONS (5)
  - Dysplastic naevus [Unknown]
  - Lymphocyte count decreased [Unknown]
  - Aspartate aminotransferase decreased [Unknown]
  - Dizziness [Recovered/Resolved]
  - Haematocrit increased [Unknown]

NARRATIVE: CASE EVENT DATE: 20141119
